FAERS Safety Report 4699405-3 (Version None)
Quarter: 2005Q2

REPORT INFORMATION
  Report Type: 
  Country: None (occurrence: None)
  Receive Date: 20050622
  Receipt Date: 20050615
  Transmission Date: 20051028
  Serious: Yes (Hospitalization, Other)
  Sender: FDA-Public Use
  Company Number: 2005BH000315

PATIENT
  Age: 62 Year
  Sex: Male

DRUGS (2)
  1. EXTRANEAL [Suspect]
     Indication: RENAL FAILURE CHRONIC
     Dosage: 2000 ML; EVERY DAY; IP
     Route: 033
     Dates: end: 20050101
  2. DIANEAL [Concomitant]

REACTIONS (3)
  - EOSINOPHILIC PNEUMONIA [None]
  - LUNG INFILTRATION [None]
  - NASOPHARYNGITIS [None]
